FAERS Safety Report 24089875 (Version 1)
Quarter: 2024Q3

REPORT INFORMATION
  Report Type: Spontaneous
  Country: FR (occurrence: None)
  Receive Date: 20240715
  Receipt Date: 20240715
  Transmission Date: 20241017
  Serious: Yes (Other)
  Sender: ASTRAZENECA
  Company Number: 2024A160549

PATIENT
  Age: 69 Year
  Sex: Male
  Weight: 100 kg

DRUGS (1)
  1. DURVALUMAB [Suspect]
     Active Substance: DURVALUMAB
     Indication: Non-small cell lung cancer
     Route: 042
     Dates: start: 20200108, end: 20201224

REACTIONS (5)
  - Thrombocytopenia [Unknown]
  - Epithelitis [Unknown]
  - Rheumatic disorder [Unknown]
  - Asthenia [Unknown]
  - Off label use [Unknown]
